FAERS Safety Report 4284072-3 (Version None)
Quarter: 2004Q1

REPORT INFORMATION
  Report Type: 
  Country: None (occurrence: None)
  Receive Date: 20040130
  Receipt Date: 20040119
  Transmission Date: 20041129
  Serious: Yes (Death, Hospitalization)
  Sender: FDA-Public Use
  Company Number: US-JNJFOC-20040103808

PATIENT
  Age: 59 Year
  Sex: Female
  Weight: 78.2455 kg

DRUGS (1)
  1. REMICADE [Suspect]
     Dosage: 4 VIALS
     Dates: start: 20031120

REACTIONS (1)
  - DEATH [None]
